FAERS Safety Report 11813701 (Version 1)
Quarter: 2015Q4

REPORT INFORMATION
  Report Type: Spontaneous
  Country: US (occurrence: None)
  Receive Date: 20151208
  Receipt Date: 20151208
  Transmission Date: 20160305
  Serious: Yes (Other)
  Sender: FDA-Public Use
  Company Number: None

PATIENT
  Age: 57 Year
  Sex: Female
  Weight: 68.04 kg

DRUGS (5)
  1. BREO INHALER [Concomitant]
  2. AZELASTINE [Concomitant]
     Active Substance: AZELASTINE
  3. B COMPLEX VITAMIN [Concomitant]
  4. TERBINAFINE 250MG CAMBER PHARMACE/ IVAGEN PHARMACEUTA [Suspect]
     Active Substance: TERBINAFINE
     Indication: ONYCHOMYCOSIS
     Route: 048
     Dates: start: 20151201, end: 20151202
  5. TERBINAFINE 250MG CAMBER PHARMACE/ IVAGEN PHARMACEUTA [Suspect]
     Active Substance: TERBINAFINE
     Indication: FUNGAL RHINITIS
     Route: 048
     Dates: start: 20151201, end: 20151202

REACTIONS (8)
  - Nausea [None]
  - Chills [None]
  - Vomiting [None]
  - Headache [None]
  - Malaise [None]
  - Asthenia [None]
  - Pain of skin [None]
  - Mobility decreased [None]

NARRATIVE: CASE EVENT DATE: 20151202
